FAERS Safety Report 5415554-6 (Version None)
Quarter: 2007Q3

REPORT INFORMATION
  Report Type: 
  Country: None (occurrence: None)
  Receive Date: 20070815
  Receipt Date: 20070809
  Transmission Date: 20080115
  Serious: Yes (Hospitalization)
  Sender: FDA-Public Use
  Company Number: B0483133A

PATIENT
  Age: 28 Year
  Sex: Female

DRUGS (2)
  1. LAMICTAL [Suspect]
     Indication: EPILEPSY
     Dosage: 50MG TWICE PER DAY
     Route: 048
     Dates: start: 20050701
  2. CARBAMAZEPINE [Suspect]
     Indication: EPILEPSY
     Dosage: .4G TWICE PER DAY
     Route: 048
     Dates: start: 20050701

REACTIONS (2)
  - TOOTH DISORDER [None]
  - TOOTH EROSION [None]
